FAERS Safety Report 7892189-7 (Version None)
Quarter: 2011Q4

REPORT INFORMATION
  Report Type: 
  Country: None (occurrence: None)
  Receive Date: 20111104
  Receipt Date: 20111026
  Transmission Date: 20120403
  Serious: Yes (Hospitalization)
  Sender: FDA-Public Use
  Company Number: CA-ASTRAZENECA-2011SE61296

PATIENT
  Age: 64 Year
  Sex: Male
  Weight: 81.6 kg

DRUGS (6)
  1. NEXIUM [Suspect]
     Route: 048
     Dates: start: 20100302
  2. METFORMIN HCL [Concomitant]
  3. VENTOLIN [Concomitant]
  4. ATROVENT [Concomitant]
  5. RABEPRAZOLE SODIUM [Concomitant]
  6. GLICLAZIDE [Concomitant]

REACTIONS (4)
  - WOUND INFECTION [None]
  - NEUROPATHY PERIPHERAL [None]
  - NEUROPATHIC ARTHROPATHY [None]
  - OSTEOMYELITIS [None]
